FAERS Safety Report 6182286-9 (Version None)
Quarter: 2009Q2

REPORT INFORMATION
  Report Type: 
  Country: None (occurrence: None)
  Receive Date: 20090507
  Receipt Date: 20090504
  Transmission Date: 20091009
  Serious: Yes (Death, Hospitalization)
  Sender: FDA-Public Use
  Company Number: JP-BRISTOL-MYERS SQUIBB COMPANY-14537666

PATIENT
  Age: 76 Year
  Sex: Female
  Weight: 45 kg

DRUGS (5)
  1. ERBITUX [Suspect]
     Indication: COLON CANCER
     Dosage: 1INF:17DEC2008,2INF:300 MG/M2,26-DEC-2008
     Route: 042
     Dates: start: 20081217, end: 20081217
  2. IRINOTECAN HCL [Suspect]
     Indication: COLON CANCER
     Route: 042
     Dates: start: 20081217, end: 20081226
  3. DIPHENHYDRAMINE HCL [Concomitant]
     Indication: PREMEDICATION
     Route: 048
     Dates: start: 20081217, end: 20081226
  4. DEXAMETHASONE 4MG TAB [Concomitant]
     Indication: PREMEDICATION
     Route: 042
     Dates: start: 20081217, end: 20081226
  5. GRANISETRON HCL [Concomitant]
     Indication: ANTIEMETIC SUPPORTIVE CARE
     Route: 042
     Dates: start: 20081217

REACTIONS (2)
  - ALTERED STATE OF CONSCIOUSNESS [None]
  - COMA [None]
